FAERS Safety Report 20674055 (Version 1)
Quarter: 2022Q2

REPORT INFORMATION
  Report Type: Report from Study
  Country: IL (occurrence: None)
  Receive Date: 20220405
  Receipt Date: 20220405
  Transmission Date: 20220721
  Serious: Yes (Hospitalization)
  Sender: FDA-Public Use
  Company Number: IL-Merck Healthcare KGaA-9310301

PATIENT
  Age: 50 Year
  Sex: Male

DRUGS (1)
  1. REBIF [Suspect]
     Active Substance: INTERFERON BETA-1A
     Indication: Multiple sclerosis
     Route: 058
     Dates: start: 20090517

REACTIONS (2)
  - Myocardial infarction [Recovering/Resolving]
  - Depressed mood [Unknown]

NARRATIVE: CASE EVENT DATE: 20220301
